FAERS Safety Report 21908902 (Version 1)
Quarter: 2023Q1

REPORT INFORMATION
  Report Type: Spontaneous
  Country: IT (occurrence: IT)
  Receive Date: 20230125
  Receipt Date: 20230125
  Transmission Date: 20230418
  Serious: Yes (Hospitalization)
  Sender: FDA-Public Use
  Company Number: IT-MINISAL02-903182

PATIENT
  Age: 81 Year
  Sex: Male
  Weight: 65 kg

DRUGS (2)
  1. BICALUTAMIDE [Suspect]
     Active Substance: BICALUTAMIDE
     Indication: Prostate cancer recurrent
     Dosage: 50 MILLIGRAM, DAILY
     Route: 048
     Dates: start: 20221202, end: 20221224
  2. TRIPTORELIN [Suspect]
     Active Substance: TRIPTORELIN
     Indication: Prostate cancer recurrent
     Dosage: UNK
     Route: 030
     Dates: start: 20221218, end: 20221218

REACTIONS (3)
  - Thrombocytopenia [Not Recovered/Not Resolved]
  - Haematuria [Unknown]
  - Anaemia [Recovering/Resolving]

NARRATIVE: CASE EVENT DATE: 20221224
